FAERS Safety Report 10569724 (Version 3)
Quarter: 2015Q1

REPORT INFORMATION
  Report Type: Spontaneous
  Country: BE (occurrence: BE)
  Receive Date: 20141107
  Receipt Date: 20150206
  Transmission Date: 20150720
  Serious: Yes (Other)
  Sender: FDA-Public Use
  Company Number: BE-AMGEN-BELSP2014049993

PATIENT
  Age: 38 Year
  Sex: Female

DRUGS (1)
  1. ENBREL [Suspect]
     Active Substance: ETANERCEPT
     Indication: ANKYLOSING SPONDYLITIS
     Dosage: 25 MG, UNK
     Route: 065

REACTIONS (6)
  - Weight decreased [Unknown]
  - Fatigue [Unknown]
  - Anaemia [Unknown]
  - Crohn^s disease [Unknown]
  - Haemorrhage [Unknown]
  - Pain [Unknown]
